FAERS Safety Report 6484421-1 (Version None)
Quarter: 2009Q4

REPORT INFORMATION
  Report Type: 
  Country: None (occurrence: None)
  Receive Date: 20091209
  Receipt Date: 20091125
  Transmission Date: 20100525
  Serious: Yes (Other)
  Sender: FDA-Public Use
  Company Number: SE-MYLANLABS-2009S1020509

PATIENT
  Age: 51 Year
  Sex: Female

DRUGS (6)
  1. TAMOXIFEN CITRATE [Suspect]
     Indication: BREAST CANCER
     Dates: start: 20061106
  2. OVESTERIN [Concomitant]
     Indication: URINARY TRACT INFECTION
  3. POLARAMINE [Concomitant]
     Indication: RASH
  4. TRIOBE /01079901/ [Concomitant]
     Indication: DRUG USE FOR UNKNOWN INDICATION
  5. FLUTIDE [Concomitant]
     Route: 045
  6. RINEXIN [Concomitant]
     Indication: NASAL CONGESTION
     Route: 045

REACTIONS (6)
  - ENDOMETRIAL HYPERPLASIA [None]
  - MYALGIA [None]
  - NASAL CONGESTION [None]
  - RASH [None]
  - SINUSITIS [None]
  - URINARY TRACT INFECTION [None]
